FAERS Safety Report 23222328 (Version 1)
Quarter: 2023Q4

REPORT INFORMATION
  Report Type: Report from Study
  Country: US (occurrence: US)
  Receive Date: 20231123
  Receipt Date: 20231123
  Transmission Date: 20240109
  Serious: Yes (Hospitalization, Other)
  Sender: FDA-Public Use
  Company Number: US-ABBVIE-5497851

PATIENT
  Sex: Male

DRUGS (1)
  1. VIIBRYD [Suspect]
     Active Substance: VILAZODONE HYDROCHLORIDE
     Indication: Depression
     Dosage: FORM STRENGTH 40 MILLIGRAM
     Route: 048
     Dates: start: 2018

REACTIONS (5)
  - Bradycardia [Recovered/Resolved]
  - Sinus node dysfunction [Not Recovered/Not Resolved]
  - Left ventricular failure [Recovering/Resolving]
  - Extrasystoles [Recovered/Resolved]
  - Cardiac failure congestive [Recovering/Resolving]

NARRATIVE: CASE EVENT DATE: 20180101
